FAERS Safety Report 9425182 (Version 2)
Quarter: 2013Q3

REPORT INFORMATION
  Report Type: Spontaneous
  Country: US (occurrence: US)
  Receive Date: 20130729
  Receipt Date: 20130830
  Transmission Date: 20140515
  Serious: No
  Sender: FDA-Public Use
  Company Number: US-PFIZER INC-2013219594

PATIENT
  Sex: Female

DRUGS (1)
  1. CELEBREX [Suspect]
     Dosage: 100 MG, UNK
     Dates: start: 201307

REACTIONS (4)
  - Asthenia [Unknown]
  - Pain [Recovered/Resolved]
  - Dysstasia [Unknown]
  - Arthritis [Unknown]
